FAERS Safety Report 9858701 (Version 1)
Quarter: 2014Q1

REPORT INFORMATION
  Report Type: Spontaneous
  Country: US (occurrence: None)
  Receive Date: 20140130
  Receipt Date: 20140130
  Transmission Date: 20141002
  Serious: Yes (Life-Threatening)
  Sender: FDA-Public Use
  Company Number: None

PATIENT
  Age: 67 Year
  Sex: Male
  Weight: 138.5 kg

DRUGS (1)
  1. SULFAMETHOXAZOLE/TRIMETHOPRIM [Suspect]
     Route: 048
     Dates: start: 20131013, end: 20131024

REACTIONS (7)
  - Hypotension [None]
  - Diarrhoea [None]
  - Asthenia [None]
  - Fatigue [None]
  - Dizziness [None]
  - Renal failure acute [None]
  - Melaena [None]
